FAERS Safety Report 7665398-X (Version None)
Quarter: 2011Q3

REPORT INFORMATION
  Report Type: 
  Country: None (occurrence: None)
  Receive Date: 20110806
  Receipt Date: 20110616
  Transmission Date: 20111222
  Serious: No
  Sender: FDA-Public Use
  Company Number: US-ABBOTT-11P-163-0732858-00

PATIENT
  Sex: Female
  Weight: 80.812 kg

DRUGS (5)
  1. NIASPAN [Suspect]
     Dates: start: 20110401
  2. NIASPAN [Suspect]
     Indication: BLOOD CHOLESTEROL
     Dates: start: 20110301, end: 20110401
  3. THYROID MEDICATION [Concomitant]
     Indication: HORMONE REPLACEMENT THERAPY
  4. ASPIRIN [Concomitant]
     Indication: PRODUCT USED FOR UNKNOWN INDICATION
  5. CRESTOR [Concomitant]
     Indication: BLOOD CHOLESTEROL INCREASED

REACTIONS (1)
  - HYPOTENSION [None]
